FAERS Safety Report 19031727 (Version 1)
Quarter: 2021Q1

REPORT INFORMATION
  Report Type: Spontaneous
  Country: US (occurrence: US)
  Receive Date: 20210319
  Receipt Date: 20210319
  Transmission Date: 20210420
  Serious: Yes (Life-Threatening)
  Sender: FDA-Public Use
  Company Number: None

PATIENT
  Age: 76 Year
  Sex: Female
  Weight: 77.2 kg

DRUGS (6)
  1. LIDOCAINE. [Concomitant]
     Active Substance: LIDOCAINE
     Dates: start: 20210318
  2. HEPARIN [Suspect]
     Active Substance: HEPARIN SODIUM
     Indication: ANTICOAGULANT THERAPY
     Dosage: ?          OTHER FREQUENCY:ONCE;?
     Route: 040
  3. CEFAZOLIN [Concomitant]
     Active Substance: CEFAZOLIN
     Dates: start: 20210318, end: 20210318
  4. ROCURONIUM [Concomitant]
     Active Substance: ROCURONIUM BROMIDE
     Dates: start: 20210318
  5. ASPIRIN. [Concomitant]
     Active Substance: ASPIRIN
     Dates: start: 20210318
  6. PROPOFOL. [Concomitant]
     Active Substance: PROPOFOL
     Dates: start: 20210318

REACTIONS (4)
  - Urticaria [None]
  - Hypotension [None]
  - Tachycardia [None]
  - Drug hypersensitivity [None]

NARRATIVE: CASE EVENT DATE: 20210318
